FAERS Safety Report 17226446 (Version 1)
Quarter: 2020Q1

REPORT INFORMATION
  Report Type: Spontaneous
  Country: US (occurrence: US)
  Receive Date: 20200102
  Receipt Date: 20200102
  Transmission Date: 20200409
  Serious: Yes (Other)
  Sender: FDA-Public Use
  Company Number: US-SUNOVION-2019SUN005613

PATIENT
  Sex: Female

DRUGS (2)
  1. APTIOM [Suspect]
     Active Substance: ESLICARBAZEPINE ACETATE
     Dosage: UNK
     Route: 048
  2. LATUDA [Suspect]
     Active Substance: LURASIDONE HYDROCHLORIDE
     Indication: AFFECTIVE DISORDER
     Dosage: UNK, HS
     Route: 048

REACTIONS (7)
  - Therapy cessation [Unknown]
  - Suicide attempt [Unknown]
  - Emotional poverty [Unknown]
  - Speech disorder [Unknown]
  - Off label use [Unknown]
  - Gait disturbance [Unknown]
  - Tremor [Unknown]
